FAERS Safety Report 4441600-2 (Version None)
Quarter: 2004Q3

REPORT INFORMATION
  Report Type: 
  Country: None (occurrence: None)
  Receive Date: 20040907
  Receipt Date: 20031118
  Transmission Date: 20050211
  Serious: Yes (Hospitalization)
  Sender: FDA-Public Use
  Company Number: 200412735JP

PATIENT
  Age: 75 Year
  Sex: Male

DRUGS (8)
  1. ARAVA [Suspect]
     Indication: RHEUMATOID ARTHRITIS
     Route: 048
     Dates: start: 20030925, end: 20031224
  2. PREDNISOLONE [Concomitant]
     Indication: RHEUMATOID ARTHRITIS
     Route: 048
  3. NORVASC [Concomitant]
     Indication: HYPERTENSION
     Route: 048
  4. HYPEN [Concomitant]
     Indication: RHEUMATOID ARTHRITIS
     Route: 048
  5. SELBEX [Concomitant]
     Indication: GASTRITIS
     Route: 048
  6. STOGAR [Concomitant]
     Indication: GASTRITIS
     Route: 048
  7. RIMATIL [Concomitant]
     Indication: RHEUMATOID ARTHRITIS
     Dosage: DOSE: 100-200
     Route: 048
     Dates: start: 20020410, end: 20030924
  8. AZULFIDINE [Concomitant]
     Indication: RHEUMATOID ARTHRITIS
     Route: 048
     Dates: end: 20030924

REACTIONS (20)
  - ALPHA 1 GLOBULIN ABNORMAL [None]
  - ALPHA 2 GLOBULIN ABNORMAL [None]
  - ASPARTATE AMINOTRANSFERASE INCREASED [None]
  - BAND NEUTROPHIL COUNT INCREASED [None]
  - BETA GLOBULIN ABNORMAL [None]
  - BLOOD ALBUMIN INCREASED [None]
  - BLOOD ALKALINE PHOSPHATASE INCREASED [None]
  - BLOOD CHOLESTEROL INCREASED [None]
  - BLOOD GLUCOSE INCREASED [None]
  - BLOOD LACTATE DEHYDROGENASE INCREASED [None]
  - CARDIAC FAILURE [None]
  - GAMMA-GLUTAMYLTRANSFERASE INCREASED [None]
  - INTERSTITIAL LUNG DISEASE [None]
  - LABORATORY TEST ABNORMAL [None]
  - LYMPHOCYTE PERCENTAGE DECREASED [None]
  - POLLAKIURIA [None]
  - RED BLOOD CELL SEDIMENTATION RATE INCREASED [None]
  - RED BLOOD CELLS URINE POSITIVE [None]
  - URINARY SEDIMENT PRESENT [None]
  - WHITE BLOOD CELLS URINE POSITIVE [None]
